FAERS Safety Report 19293377 (Version 1)
Quarter: 2021Q2

REPORT INFORMATION
  Report Type: Spontaneous
  Country: US (occurrence: US)
  Receive Date: 20210522
  Receipt Date: 20210522
  Transmission Date: 20210717
  Serious: Yes (Death, Hospitalization)
  Sender: FDA-Public Use
  Company Number: None

PATIENT
  Age: 73 Year
  Sex: Male
  Weight: 76.5 kg

DRUGS (2)
  1. TAXOL [Suspect]
     Active Substance: PACLITAXEL
     Dates: end: 20201111
  2. CARBOPLATIN. [Suspect]
     Active Substance: CARBOPLATIN
     Dates: end: 20201111

REACTIONS (8)
  - Asthenia [None]
  - Dysphagia [None]
  - Unresponsive to stimuli [None]
  - Hypoxia [None]
  - COVID-19 [None]
  - Pupil fixed [None]
  - Dehydration [None]
  - Dyspnoea [None]

NARRATIVE: CASE EVENT DATE: 20201203
